FAERS Safety Report 9629271 (Version 1)
Quarter: 2013Q4

REPORT INFORMATION
  Report Type: Spontaneous
  Country: US (occurrence: US)
  Receive Date: 20131017
  Receipt Date: 20131017
  Transmission Date: 20140711
  Serious: No
  Sender: FDA-Public Use
  Company Number: US-ASTRAZENECA-2013SE70542

PATIENT
  Age: 56 Year
  Sex: Female

DRUGS (6)
  1. NEXIUM [Suspect]
     Route: 048
  2. CRESTOR [Suspect]
     Indication: BLOOD CHOLESTEROL INCREASED
     Route: 048
     Dates: start: 201212
  3. CRESTOR [Suspect]
     Indication: BLOOD CHOLESTEROL INCREASED
     Route: 048
  4. CRESTOR [Suspect]
     Indication: BLOOD CHOLESTEROL INCREASED
     Dosage: TAKING CRESTOR EVERY ONCE IN A WHILE
     Route: 048
  5. SYNTHROID [Concomitant]
  6. PLAVIX [Concomitant]

REACTIONS (4)
  - Fatigue [Unknown]
  - Abdominal pain upper [Unknown]
  - Liver function test abnormal [Unknown]
  - Intentional drug misuse [Unknown]
